FAERS Safety Report 14586966 (Version 1)
Quarter: 2018Q1

REPORT INFORMATION
  Report Type: Spontaneous
  Country: DE (occurrence: DE)
  Receive Date: 20180301
  Receipt Date: 20180301
  Transmission Date: 20180509
  Serious: Yes (Death, Hospitalization, Other)
  Sender: FDA-Public Use
  Company Number: DE-WEST-WARD PHARMACEUTICALS CORP.-DE-H14001-18-01031

PATIENT
  Age: 58 Year
  Sex: Male
  Weight: 81 kg

DRUGS (25)
  1. L-THYROXIN [Concomitant]
     Active Substance: LEVOTHYROXINE SODIUM
     Indication: HYPOTHYROIDISM
     Dosage: 125 MICROGRAM
     Route: 048
     Dates: start: 201712, end: 20180201
  2. NOVALGIN (METAMIZOLE SODIUM) [Concomitant]
     Active Substance: METAMIZOLE SODIUM
     Dosage: 1 GRAM
     Route: 041
     Dates: start: 20180117, end: 20180117
  3. KEVATRIL [Concomitant]
     Active Substance: GRANISETRON HYDROCHLORIDE
     Indication: PROPHYLAXIS
     Route: 041
     Dates: start: 20171130, end: 20180110
  4. MOVICOL [Concomitant]
     Active Substance: POLYETHYLENE GLYCOL 3350\POTASSIUM CHLORIDE\SODIUM BICARBONATE\SODIUM CHLORIDE
     Indication: PROPHYLAXIS
     Dosage: 13.81 GRAM
     Route: 048
     Dates: end: 201801
  5. STEROFUNDIN BG-5 [Concomitant]
     Dosage: 500 MILLILITER
     Route: 041
     Dates: start: 20180124, end: 20180124
  6. ABRAXANE [Suspect]
     Active Substance: PACLITAXEL
     Route: 041
     Dates: start: 20180104
  7. FORTECORTIN [Concomitant]
     Active Substance: DEXAMETHASONE
     Indication: PROPHYLAXIS
     Route: 048
     Dates: start: 20171201, end: 20180113
  8. ABRAXANE [Suspect]
     Active Substance: PACLITAXEL
     Indication: NON-SMALL CELL LUNG CANCER
     Route: 041
     Dates: start: 20171130
  9. CLEXANE [Concomitant]
     Active Substance: ENOXAPARIN SODIUM
     Indication: PULMONARY EMBOLISM
     Dosage: 1.8 MILLILITER
     Route: 058
     Dates: start: 201711, end: 20180201
  10. MST [Concomitant]
     Active Substance: MORPHINE SULFATE\NALTREXONE HYDROCHLORIDE
     Indication: TUMOUR PAIN
     Dosage: 20 MILLIGRAM
     Route: 048
     Dates: start: 201712, end: 20180201
  11. SEVREDOL [Concomitant]
     Active Substance: MORPHINE
     Indication: TUMOUR PAIN
     Route: 048
     Dates: start: 20180110, end: 20180201
  12. RANITIC [Concomitant]
     Active Substance: RANITIDINE HYDROCHLORIDE
     Indication: PROPHYLAXIS
     Route: 041
     Dates: start: 20171130, end: 20180110
  13. L-THYROXIN [Concomitant]
     Active Substance: LEVOTHYROXINE SODIUM
     Dosage: 100 MICROGRAM
     Route: 048
     Dates: end: 201712
  14. NOVALGIN (METAMIZOLE SODIUM) [Concomitant]
     Active Substance: METAMIZOLE SODIUM
     Indication: TUMOUR PAIN
     Dosage: 2250 MILLIGRAM
     Route: 048
     Dates: start: 201711, end: 20180201
  15. PALLADON RET. [Concomitant]
     Indication: TUMOUR PAIN
     Dosage: 8 MILLIGRAM
     Route: 048
     Dates: start: 201711, end: 201712
  16. CARBOPLATIN. [Suspect]
     Active Substance: CARBOPLATIN
     Indication: NON-SMALL CELL LUNG CANCER
     Dosage: 3 MG MIN/ML ()
     Route: 041
     Dates: start: 20171130, end: 20180110
  17. PARACODEIN [Concomitant]
     Indication: PRODUCTIVE COUGH
     Route: 048
     Dates: start: 20171228, end: 201801
  18. MCP [Concomitant]
     Active Substance: METOCLOPRAMIDE HYDROCHLORIDE
     Indication: PROPHYLAXIS
     Route: 048
     Dates: start: 20171201, end: 201801
  19. TOREM [Concomitant]
     Active Substance: TORSEMIDE
     Indication: HYPERTENSION
     Dosage: 5 MILLIGRAM
     Route: 048
     Dates: end: 201801
  20. DULCOLAX NOS [Concomitant]
     Active Substance: BISACODYL OR DOCUSATE SODIUM
     Indication: CONSTIPATION
     Dosage: 99 MILLIGRAM
     Route: 048
     Dates: start: 20180117, end: 20180117
  21. MAGNESIUM VERLA [Concomitant]
     Active Substance: MAGNESIUM
     Indication: PROPHYLAXIS
     Dosage: 240 MILLIGRAM
     Route: 048
     Dates: end: 20171201
  22. FENISTIL [Concomitant]
     Active Substance: DIMETHINDENE
     Indication: PROPHYLAXIS
     Route: 041
     Dates: start: 20171130, end: 20180110
  23. FORTECORTIN [Concomitant]
     Active Substance: DEXAMETHASONE
     Indication: DYSPNOEA
     Dosage: 8 MILLIGRAM
     Route: 048
     Dates: start: 201711, end: 20180201
  24. PANTOZOL [Concomitant]
     Active Substance: PANTOPRAZOLE SODIUM
     Indication: PROPHYLAXIS
     Dosage: 40 MILLIGRAM
     Route: 048
     Dates: end: 20180201
  25. STEROFUNDIN BG-5 [Concomitant]
     Indication: PROPHYLAXIS
     Dosage: 500 MILLILITER
     Route: 065
     Dates: start: 20180117, end: 20180117

REACTIONS (4)
  - Non-small cell lung cancer [Fatal]
  - Hypokalaemia [Recovering/Resolving]
  - Off label use [Not Recovered/Not Resolved]
  - Lung infection [Fatal]

NARRATIVE: CASE EVENT DATE: 2017
